FAERS Safety Report 18251593 (Version 1)
Quarter: 2020Q3

REPORT INFORMATION
  Report Type: Report from Study
  Country: None (occurrence: TR)
  Receive Date: 20200910
  Receipt Date: 20200910
  Transmission Date: 20201103
  Serious: Yes (Death, Hospitalization)
  Sender: FDA-Public Use
  Company Number: TR-ABBVIE-20K-161-3238366-00

PATIENT
  Age: 67 Year
  Sex: Female
  Weight: 104 kg

DRUGS (10)
  1. VASTAREL [Concomitant]
     Active Substance: TRIMETAZIDINE DIHYDROCHLORIDE
     Indication: ANGINA PECTORIS
     Route: 048
     Dates: start: 20180123
  2. GLUKOFEN [Concomitant]
     Active Substance: METFORMIN HYDROCHLORIDE
     Indication: DIABETES MELLITUS
     Route: 048
  3. DUODOPA [Suspect]
     Active Substance: CARBIDOPA\LEVODOPA
     Dosage: MD (ML): 6.20 CONTINUOUS DOSE (ML): 6.20 ED(ML): 2.50?20 MG/ML 5 MG/ML
     Route: 050
     Dates: start: 20200116
  4. LIPITOR [Concomitant]
     Active Substance: ATORVASTATIN CALCIUM
     Indication: BLOOD CHOLESTEROL
     Route: 048
  5. DAFLON [Concomitant]
     Indication: PROPHYLAXIS
     Route: 048
  6. DUODOPA [Suspect]
     Active Substance: CARBIDOPA\LEVODOPA
     Indication: PARKINSON^S DISEASE
     Dosage: MORNING DOSE (ML): 4.90 CONTINUOUS DOSE (ML): 4.90 EXTRA DOSE (ML): 2.00
     Route: 050
     Dates: start: 20180123, end: 20200116
  7. DIAFORMIN [Concomitant]
     Active Substance: METFORMIN HYDROCHLORIDE
     Indication: DIABETES MELLITUS
     Route: 048
  8. SANELOC [Concomitant]
     Active Substance: METOPROLOL
     Indication: HYPERTENSION
     Route: 048
  9. AYRA PLUS [Concomitant]
     Active Substance: CANDESARTAN CILEXETIL\HYDROCHLOROTHIAZIDE
     Indication: HYPERTENSION
     Dosage: 16/12.5 MG AS REQUIRED DEPENDING ON TENSION SITUATION
     Route: 048
  10. DETRUSITOL [Concomitant]
     Active Substance: TOLTERODINE TARTRATE
     Indication: URINARY INCONTINENCE
     Route: 048

REACTIONS (4)
  - Stoma site infection [Recovered/Resolved]
  - COVID-19 [Fatal]
  - Bradykinesia [Recovered/Resolved]
  - Cardiac arrest [Fatal]

NARRATIVE: CASE EVENT DATE: 20200905
